FAERS Safety Report 17492634 (Version 3)
Quarter: 2020Q1

REPORT INFORMATION
  Report Type: Spontaneous
  Country: IN (occurrence: IN)
  Receive Date: 20200304
  Receipt Date: 20200326
  Transmission Date: 20200409
  Serious: Yes (Other)
  Sender: FDA-Public Use
  Company Number: IN-REGENERON PHARMACEUTICALS, INC.-2020-22645

PATIENT

DRUGS (1)
  1. EYLEA [Suspect]
     Active Substance: AFLIBERCEPT
     Indication: NEOVASCULAR AGE-RELATED MACULAR DEGENERATION
     Dosage: 1 DF, ONCE - 1ST INJECTION
     Route: 031
     Dates: start: 20200204, end: 20200204

REACTIONS (2)
  - Blindness [Unknown]
  - Blindness [Unknown]

NARRATIVE: CASE EVENT DATE: 202002
